FAERS Safety Report 5390154-5 (Version None)
Quarter: 2007Q3

REPORT INFORMATION
  Report Type: 
  Country: None (occurrence: None)
  Receive Date: 20070716
  Receipt Date: 20070716
  Transmission Date: 20080115
  Serious: Yes (Other)
  Sender: FDA-Public Use
  Company Number: None

PATIENT
  Age: 19 Year
  Sex: Female
  Weight: 47.6277 kg

DRUGS (1)
  1. MAYORAL EXTRA STRENGTH GLAXOSMITHKLINE [Suspect]
     Indication: ABDOMINAL PAIN UPPER
     Dosage: 7 PO 2 PO
     Route: 048
     Dates: start: 20070711, end: 20070712

REACTIONS (2)
  - DRUG EXPOSURE DURING PREGNANCY [None]
  - PREGNANCY [None]
